FAERS Safety Report 12606600 (Version 1)
Quarter: 2016Q3

REPORT INFORMATION
  Report Type: Spontaneous
  Country: US (occurrence: None)
  Receive Date: 20160728
  Receipt Date: 20160728
  Transmission Date: 20161109
  Serious: No
  Sender: FDA-Public Use
  Company Number: None

PATIENT
  Age: 8 Year
  Sex: Female

DRUGS (14)
  1. SIMETHICONE (DIMETHICONE) [Concomitant]
     Active Substance: DIMETHICONE
  2. VITAMIN D3 [Concomitant]
     Active Substance: CHOLECALCIFEROL
  3. TOBI [Concomitant]
     Active Substance: TOBRAMYCIN
  4. AQUADEKS [Concomitant]
     Active Substance: MINERALS\VITAMINS
  5. OMEPRAZOLE. [Concomitant]
     Active Substance: OMEPRAZOLE
  6. MIRALAX [Concomitant]
     Active Substance: POLYETHYLENE GLYCOL 3350
  7. FLUTICASONE [Concomitant]
     Active Substance: FLUTICASONE\FLUTICASONE PROPIONATE
  8. URSODIOL. [Concomitant]
     Active Substance: URSODIOL
  9. RANITIDINE. [Concomitant]
     Active Substance: RANITIDINE
  10. PULMOZYME [Concomitant]
     Active Substance: DORNASE ALFA
  11. ACIDOPHILLUS [Concomitant]
  12. PERTZYE [Suspect]
     Active Substance: PANCRELIPASE AMYLASE\PANCRELIPASE LIPASE\PANCRELIPASE PROTEASE
     Indication: CYSTIC FIBROSIS
     Dosage: MAXZOCS/DAY UP TO 6X PER DAY PO
     Route: 048
     Dates: start: 20150204
  13. SOD. CHL [Concomitant]
  14. CETIRIZINE [Concomitant]
     Active Substance: CETIRIZINE HYDROCHLORIDE

REACTIONS (1)
  - Hospitalisation [None]
